FAERS Safety Report 8539686-9 (Version None)
Quarter: 2012Q3

REPORT INFORMATION
  Report Type: 
  Country: None (occurrence: None)
  Receive Date: 20120726
  Receipt Date: 20110720
  Transmission Date: 20120928
  Serious: No
  Sender: FDA-Public Use
  Company Number: US-ASTRAZENECA-2008UW08439

PATIENT
  Age: 12343 Day
  Sex: Male
  Weight: 86.2 kg

DRUGS (9)
  1. SEROQUEL [Suspect]
     Route: 048
     Dates: start: 20070417
  2. WELLBUTRIN [Concomitant]
  3. SEROQUEL [Suspect]
     Indication: DEPRESSION
     Dosage: 200 MG AM + 300 MG PM
     Route: 048
     Dates: start: 20050316, end: 20070501
  4. SEROQUEL [Suspect]
     Route: 048
     Dates: start: 20070417
  5. MOTRIN [Concomitant]
  6. LOPID [Concomitant]
     Dosage: 600-1200 MG
     Dates: start: 20070920
  7. GLUCOPHAGE [Concomitant]
     Route: 048
     Dates: start: 20070417
  8. ABILIFY [Concomitant]
     Dates: start: 20040305
  9. SEROQUEL [Suspect]
     Indication: BIPOLAR DISORDER
     Dosage: 200 MG AM + 300 MG PM
     Route: 048
     Dates: start: 20050316, end: 20070501

REACTIONS (8)
  - HEADACHE [None]
  - MYALGIA [None]
  - BLOOD CHOLESTEROL INCREASED [None]
  - BLOOD TRIGLYCERIDES INCREASED [None]
  - HYPERLIPIDAEMIA [None]
  - FATIGUE [None]
  - TYPE 2 DIABETES MELLITUS [None]
  - DIZZINESS [None]
